FAERS Safety Report 4946262-3 (Version None)
Quarter: 2006Q1

REPORT INFORMATION
  Report Type: 
  Country: None (occurrence: None)
  Receive Date: 20060317
  Receipt Date: 20051031
  Transmission Date: 20060701
  Serious: Yes (Other)
  Sender: FDA-Public Use
  Company Number: JP-SP-2005-02269

PATIENT
  Age: 55 Year
  Sex: Female

DRUGS (2)
  1. IMMUCYST [Suspect]
     Indication: BLADDER CANCER
     Dosage: 8 INSTILLATIONS, ONCE A WEEK
     Route: 043
     Dates: start: 20050620, end: 20050815
  2. IMMUCYST [Suspect]
     Dosage: 8 INSTILLATIONS, ONCE A WEEK
     Route: 043
     Dates: start: 20050620, end: 20050815

REACTIONS (7)
  - CYSTITIS [None]
  - HYPERTONIC BLADDER [None]
  - INCONTINENCE [None]
  - POLLAKIURIA [None]
  - PYREXIA [None]
  - PYURIA [None]
  - URETHRAL PAIN [None]
